FAERS Safety Report 25621346 (Version 1)
Quarter: 2025Q3

REPORT INFORMATION
  Report Type: Report from Study
  Country: IN (occurrence: IN)
  Receive Date: 20250730
  Receipt Date: 20250730
  Transmission Date: 20251020
  Serious: Yes (Hospitalization)
  Sender: CIPLA
  Company Number: IN-CIPLA LTD.-2025IN09335

PATIENT

DRUGS (2)
  1. LEVETIRACETAM [Suspect]
     Active Substance: LEVETIRACETAM
     Indication: Product used for unknown indication
     Dosage: 750 MILLIGRAM, BID (LEVEPSY)
     Route: 048
     Dates: start: 202401
  2. TORPANEL [Concomitant]
     Indication: Product used for unknown indication
     Route: 065

REACTIONS (1)
  - Accident [Unknown]

NARRATIVE: CASE EVENT DATE: 20240101
